FAERS Safety Report 7244124-2 (Version None)
Quarter: 2010Q4

REPORT INFORMATION
  Report Type: 
  Country: None (occurrence: None)
  Receive Date: 20101130
  Receipt Date: 20091029
  Transmission Date: 20110411
  Serious: Yes (Hospitalization, Other)
  Sender: FDA-Public Use
  Company Number: 2009SP021522

PATIENT
  Age: 32 Year
  Sex: Female
  Weight: 68.0396 kg

DRUGS (5)
  1. NUVARING [Suspect]
     Indication: PRODUCT USED FOR UNKNOWN INDICATION
     Dates: start: 20061201, end: 20070701
  2. FEXOFENADINE [Concomitant]
  3. AZITHROMYCIN [Concomitant]
  4. PSEUDOVENT [Concomitant]
  5. BUPROPION HCL [Concomitant]

REACTIONS (1)
  - DEEP VEIN THROMBOSIS [None]
